FAERS Safety Report 18273642 (Version 1)
Quarter: 2020Q3

REPORT INFORMATION
  Report Type: Spontaneous
  Country: US (occurrence: US)
  Receive Date: 20200916
  Receipt Date: 20200916
  Transmission Date: 20201103
  Serious: Yes (Hospitalization)
  Sender: FDA-Public Use
  Company Number: US-VERTEX PHARMACEUTICALS-2020-018245

PATIENT
  Sex: Female
  Weight: 47 kg

DRUGS (2)
  1. PULMOZYME [Concomitant]
     Active Substance: DORNASE ALFA
  2. TRIKAFTA [Suspect]
     Active Substance: ELEXACAFTOR\IVACAFTOR\TEZACAFTOR
     Indication: CYSTIC FIBROSIS
     Dosage: 2 ORANGE TABS(100MG ELEXACAFTOR/50MG TEZACAFTOR/75MG IVACAFTOR) 1 BLUE TAB(150MG IVACAFTOR)PM
     Route: 048

REACTIONS (1)
  - Infective pulmonary exacerbation of cystic fibrosis [Unknown]

NARRATIVE: CASE EVENT DATE: 2020
